FAERS Safety Report 24742805 (Version 1)
Quarter: 2024Q4

REPORT INFORMATION
  Report Type: Report from Study
  Country: US (occurrence: US)
  Receive Date: 20241217
  Receipt Date: 20241217
  Transmission Date: 20250115
  Serious: Yes (Death, Other)
  Sender: SANOFI AVENTIS
  Company Number: US-DialogSolutions-SAAVPROD-PI716191-C3

PATIENT

DRUGS (10)
  1. OXALIPLATIN [Suspect]
     Active Substance: OXALIPLATIN
     Indication: Diffuse large B-cell lymphoma refractory
     Dosage: 100 MG/M2, QCY (ON CYCLE 1, DAY 11 AND CYCLE 1, DAY 23)
     Route: 042
  2. OXALIPLATIN [Suspect]
     Active Substance: OXALIPLATIN
     Dosage: 100 MG/M2, QCY (ON DAYS 2 AND 15 OF CYCLES 2 THROUGH 4)
     Route: 042
  3. MAGROLIMAB [Suspect]
     Active Substance: MAGROLIMAB
     Indication: Diffuse large B-cell lymphoma refractory
     Dosage: 1 MG/KG (PRIMING DOSE ON DAY 1)
     Route: 042
  4. MAGROLIMAB [Suspect]
     Active Substance: MAGROLIMAB
     Dosage: 1 MG/KG, QW
     Route: 042
  5. MAGROLIMAB [Suspect]
     Active Substance: MAGROLIMAB
     Dosage: 30 OR 45 MG/KG, QOW (CYCLES ?3)
     Route: 042
  6. RITUXIMAB [Suspect]
     Active Substance: RITUXIMAB
     Indication: Diffuse large B-cell lymphoma refractory
     Dosage: 375 MG/M2, QW (DAY 8)
     Route: 042
  7. RITUXIMAB [Suspect]
     Active Substance: RITUXIMAB
     Dosage: 1 DF, QM (ON DAY 1 OF CYCLES 2 THROUGH 6)
     Route: 042
  8. RITUXIMAB [Suspect]
     Active Substance: RITUXIMAB
     Dosage: ON DAY 1 OF EVERY OTHER CYCLE BEGINNING WITH CYCLE 8
     Route: 042
  9. GEMCITABINE [Suspect]
     Active Substance: GEMCITABINE
     Indication: Diffuse large B-cell lymphoma refractory
     Dosage: 1000 MG/M2, QCY (ON CYCLE 1, DAY 11 AND CYCLE 1, DAY 23)
     Route: 042
  10. GEMCITABINE [Suspect]
     Active Substance: GEMCITABINE
     Dosage: 1000 MG/M2, QCY (ON DAYS 2 AND 15)
     Route: 042

REACTIONS (1)
  - Colitis [Fatal]
